FAERS Safety Report 5362322-X (Version None)
Quarter: 2007Q2

REPORT INFORMATION
  Report Type: 
  Country: None (occurrence: None)
  Receive Date: 20070619
  Receipt Date: 20070608
  Transmission Date: 20071010
  Serious: Yes (Life-Threatening)
  Sender: FDA-Public Use
  Company Number: B0475564A

PATIENT
  Age: 59 Year
  Sex: Male

DRUGS (2)
  1. MALARONE [Suspect]
     Indication: PROPHYLAXIS
     Route: 048
     Dates: start: 20070329, end: 20070405
  2. DIPHANTOINE [Suspect]
     Indication: DRUG USE FOR UNKNOWN INDICATION
     Dosage: 100U TWICE PER DAY
     Route: 048
     Dates: start: 19980101

REACTIONS (2)
  - CONVULSION [None]
  - DRUG INTERACTION INHIBITION [None]
